FAERS Safety Report 8984556 (Version 4)
Quarter: 2013Q4

REPORT INFORMATION
  Report Type: Spontaneous
  Country: US (occurrence: US)
  Receive Date: 20121226
  Receipt Date: 20131018
  Transmission Date: 20140711
  Serious: Yes (Disabling)
  Sender: FDA-Public Use
  Company Number: US-ASTRAZENECA-2012SE94734

PATIENT
  Age: 62 Year
  Sex: Male

DRUGS (17)
  1. NEXIUM [Suspect]
     Indication: GASTROOESOPHAGEAL REFLUX DISEASE
     Route: 048
     Dates: start: 20020107
  2. VICOPROFEN [Concomitant]
     Dosage: 200/7.5
     Dates: start: 20010111
  3. LAMISIL [Concomitant]
     Dates: start: 20000614
  4. CYCLOBENZAPRINE [Concomitant]
     Dates: start: 20000802
  5. RELAFEN [Concomitant]
     Dates: start: 20000822
  6. PSEUDOVENT [Concomitant]
     Dates: start: 20010115
  7. DOXYCYCLINE [Concomitant]
     Dates: start: 20010614
  8. NORVASC [Concomitant]
     Dates: start: 20010702
  9. ATENOLOL [Concomitant]
     Dates: start: 20010702
  10. RYNATUSS [Concomitant]
     Dates: start: 20020222
  11. METRONIDAZOLE [Concomitant]
     Dates: start: 20020322
  12. AUGMENTIN [Concomitant]
     Dosage: 875-125
     Dates: start: 20020920
  13. ZANTAC [Concomitant]
  14. DILTIAZEM XT [Concomitant]
     Indication: BLOOD PRESSURE ABNORMAL
  15. METOPROLOL SUCC [Concomitant]
     Indication: BLOOD PRESSURE ABNORMAL
  16. SIMVASTATIN [Concomitant]
     Indication: BLOOD CHOLESTEROL ABNORMAL
  17. B12 [Concomitant]

REACTIONS (12)
  - Ankle fracture [Unknown]
  - Osteoporosis [Unknown]
  - Bone disorder [Unknown]
  - Hand fracture [Unknown]
  - Spinal osteoarthritis [Unknown]
  - Osteoarthritis [Unknown]
  - Fibula fracture [Unknown]
  - Ligament rupture [Unknown]
  - Tendon rupture [Unknown]
  - Sacroiliitis [Unknown]
  - Epicondylitis [Unknown]
  - Costochondritis [Unknown]
